FAERS Safety Report 24440456 (Version 1)
Quarter: 2024Q4

REPORT INFORMATION
  Report Type: Spontaneous
  Country: SK (occurrence: SK)
  Receive Date: 20241016
  Receipt Date: 20241016
  Transmission Date: 20250114
  Serious: Yes (Other)
  Sender: ABBVIE
  Company Number: SK-ABBVIE-5961790

PATIENT
  Age: 68 Year
  Sex: Female

DRUGS (5)
  1. VENETOCLAX [Suspect]
     Active Substance: VENETOCLAX
     Indication: Acute myeloid leukaemia
     Route: 048
  2. PIPERACILLIN SODIUM\TAZOBACTAM SODIUM [Concomitant]
     Active Substance: PIPERACILLIN SODIUM\TAZOBACTAM SODIUM
     Indication: Product used for unknown indication
     Dosage: DOSE FORM POWDER FOR SOLUTION FOR INJECTION OR INFUSION
     Route: 042
     Dates: start: 20241011
  3. AZACITIDINE [Suspect]
     Active Substance: AZACITIDINE
     Indication: Acute myeloid leukaemia
     Dosage: 75 MG/M2, THAT IS 138 MG DAY 1-DAY 7
     Route: 065
  4. PANTOPRAZOLE [Concomitant]
     Active Substance: PANTOPRAZOLE
     Indication: Product used for unknown indication
     Dosage: FORM STRENGTH: 20 MILLIGRAM?FREQUENCY TEXT: 1-0-0
  5. PROBIO FIX [Concomitant]
     Indication: Product used for unknown indication
     Dosage: FREQUENCY TEXT: 1-1-1

REACTIONS (9)
  - Acute kidney injury [Unknown]
  - Electrolyte imbalance [Unknown]
  - Blood urea increased [Unknown]
  - Nephropathy [Unknown]
  - Oliguria [Unknown]
  - Blood lactate dehydrogenase increased [Unknown]
  - White blood cell count decreased [Unknown]
  - Cytopenia [Unknown]
  - Anuria [Unknown]
